FAERS Safety Report 9361969 (Version 1)
Quarter: 2013Q2

REPORT INFORMATION
  Report Type: Spontaneous
  Country: US (occurrence: US)
  Receive Date: 20130621
  Receipt Date: 20130621
  Transmission Date: 20140414
  Serious: No
  Sender: FDA-Public Use
  Company Number: US-009507513-1306USA009646

PATIENT
  Age: 2 Year
  Sex: Female
  Weight: 11.79 kg

DRUGS (1)
  1. CLARITIN CHEWABLE TABLETS [Suspect]
     Indication: PRODUCT USED FOR UNKNOWN INDICATION
     Dosage: 15 MG, ONCE
     Route: 048

REACTIONS (2)
  - Accidental overdose [Unknown]
  - Accidental exposure to product by child [Unknown]
